FAERS Safety Report 9892207 (Version 1)
Quarter: 2014Q1

REPORT INFORMATION
  Report Type: Spontaneous
  Country: PA (occurrence: PA)
  Receive Date: 20140212
  Receipt Date: 20140212
  Transmission Date: 20141002
  Serious: Yes (Death, Hospitalization)
  Sender: FDA-Public Use
  Company Number: PHHY2014PA016240

PATIENT
  Age: 5 Year
  Sex: Female

DRUGS (2)
  1. DICLOFENAC [Suspect]
  2. AMPICILLIN [Concomitant]

REACTIONS (14)
  - Rocky mountain spotted fever [Fatal]
  - Pyrexia [Fatal]
  - Nausea [Fatal]
  - Bacteraemia [Fatal]
  - Petechiae [Fatal]
  - Cyanosis [Fatal]
  - Pulse abnormal [Fatal]
  - Abdominal tenderness [Fatal]
  - Dehydration [Fatal]
  - Convulsion [Fatal]
  - Thrombocytopenia [Fatal]
  - Leukocytosis [Fatal]
  - Blast cells [Fatal]
  - Abdominal pain [Unknown]
